FAERS Safety Report 6985896-1 (Version None)
Quarter: 2010Q3

REPORT INFORMATION
  Report Type: 
  Country: None (occurrence: None)
  Receive Date: 20100915
  Receipt Date: 20100811
  Transmission Date: 20110219
  Serious: Yes (Death, Hospitalization, Other)
  Sender: FDA-Public Use
  Company Number: PHEH2006US11226

PATIENT
  Sex: Female

DRUGS (2)
  1. AREDIA [Suspect]
     Dosage: UNK
  2. ZOMETA [Suspect]
     Dosage: UNK

REACTIONS (28)
  - ANXIETY [None]
  - ASPIRATION [None]
  - BONE DISORDER [None]
  - CARDIAC FAILURE CONGESTIVE [None]
  - CARDIOMYOPATHY [None]
  - COUGH [None]
  - DEATH [None]
  - DECREASED INTEREST [None]
  - DEHYDRATION [None]
  - DYSPNOEA [None]
  - EDENTULOUS [None]
  - ERYTHEMA [None]
  - GENERAL PHYSICAL HEALTH DETERIORATION [None]
  - GINGIVITIS [None]
  - HYPOXIA [None]
  - MACULAR DEGENERATION [None]
  - NAUSEA [None]
  - OSTEOMYELITIS [None]
  - OSTEONECROSIS OF JAW [None]
  - OSTEOPOROSIS [None]
  - PAIN [None]
  - PURULENCE [None]
  - RENAL FAILURE ACUTE [None]
  - SECONDARY SEQUESTRUM [None]
  - VISION BLURRED [None]
  - VISUAL ACUITY REDUCED [None]
  - VOMITING [None]
  - WOUND COMPLICATION [None]
